FAERS Safety Report 4539411-2 (Version None)
Quarter: 2004Q4

REPORT INFORMATION
  Report Type: 
  Country: None (occurrence: None)
  Receive Date: 20041227
  Receipt Date: 20041227
  Transmission Date: 20050328
  Serious: Yes (Hospitalization)
  Sender: FDA-Public Use
  Company Number: None

PATIENT
  Age: 73 Year
  Sex: Female
  Weight: 51.4833 kg

DRUGS (16)
  1. AVASTIN [Suspect]
     Indication: COLON CANCER METASTATIC
     Dosage: 269 MG Q 2 WK IV
     Route: 042
     Dates: start: 20041206
  2. OXALIPLATIN [Suspect]
     Indication: COLON CANCER METASTATIC
     Dosage: 134 MG
     Dates: start: 20041206
  3. LEUCOVORIN [Suspect]
     Indication: COLON CANCER METASTATIC
     Dosage: 628 MG
     Dates: start: 20041206
  4. FLUOROURACIL [Suspect]
     Indication: COLON CANCER METASTATIC
     Dosage: 3768 MG
     Dates: start: 20041206
  5. SKELAXIN [Concomitant]
  6. PYRIDIUM [Concomitant]
  7. PREVACID [Concomitant]
  8. PERCOCET [Concomitant]
  9. MMW [Concomitant]
  10. MEGACE [Concomitant]
  11. MACRODANTIN [Concomitant]
  12. K-DUR [Concomitant]
  13. DARVOCET-N 100 [Concomitant]
  14. COUMADIN [Concomitant]
  15. COMPAZINE [Concomitant]
  16. ANTIVERT [Concomitant]

REACTIONS (14)
  - ABDOMINAL PAIN [None]
  - DEEP VEIN THROMBOSIS [None]
  - DIARRHOEA [None]
  - GASTROINTESTINAL TOXICITY [None]
  - HYPOKALAEMIA [None]
  - INTERNATIONAL NORMALISED RATIO DECREASED [None]
  - INTERNATIONAL NORMALISED RATIO INCREASED [None]
  - LUNG INFILTRATION [None]
  - NAUSEA [None]
  - NEUTROPENIA [None]
  - PULMONARY EMBOLISM [None]
  - PYREXIA [None]
  - URINARY TRACT INFECTION [None]
  - VOMITING [None]
